FAERS Safety Report 8963342 (Version 1)
Quarter: 2012Q4

REPORT INFORMATION
  Report Type: 
  Country: US (occurrence: US)
  Receive Date: 20121214
  Receipt Date: 20121214
  Transmission Date: 20130627
  Serious: Yes (Hospitalization)
  Sender: FDA-Public Use
  Company Number: US-B.I. PHARMACEUTICALS,INC./RIDGEFIELD-2012-BI-02855BP

PATIENT
  Sex: Female
  Weight: 74 kg

DRUGS (2)
  1. SPIRIVA [Suspect]
     Indication: CHRONIC OBSTRUCTIVE PULMONARY DISEASE
     Dosage: 18 mcg
     Route: 055
     Dates: start: 201112
  2. SYNTHROID [Concomitant]
     Indication: HYPERTHYROIDISM
     Dosage: 150 mg
     Route: 048
     Dates: start: 2010

REACTIONS (6)
  - Atrial fibrillation [Not Recovered/Not Resolved]
  - Asthenia [Not Recovered/Not Resolved]
  - Thyroid disorder [Recovered/Resolved]
  - Heart rate increased [Recovered/Resolved]
  - Weight increased [Not Recovered/Not Resolved]
  - Hypotension [Recovered/Resolved]
